FAERS Safety Report 5232995-0 (Version None)
Quarter: 2007Q1

REPORT INFORMATION
  Report Type: 
  Country: None (occurrence: None)
  Receive Date: 20070207
  Receipt Date: 20070125
  Transmission Date: 20070707
  Serious: Yes (Other)
  Sender: FDA-Public Use
  Company Number: US-SHR-US-2007-002496

PATIENT
  Age: 47 Year
  Sex: Female

DRUGS (1)
  1. BETASERON [Suspect]
     Indication: RELAPSING-REMITTING MULTIPLE SCLEROSIS
     Dosage: 8 MIU, EVERY 2D
     Route: 058
     Dates: start: 19940111, end: 20070101

REACTIONS (5)
  - AGGRESSION [None]
  - FAECAL INCONTINENCE [None]
  - MENTAL IMPAIRMENT [None]
  - URINARY INCONTINENCE [None]
  - VISUAL ACUITY REDUCED [None]
